FAERS Safety Report 5668999-3 (Version None)
Quarter: 2008Q1

REPORT INFORMATION
  Report Type: 
  Country: None (occurrence: None)
  Receive Date: 20080317
  Receipt Date: 20080214
  Transmission Date: 20080703
  Serious: No
  Sender: FDA-Public Use
  Company Number: US-BAYER-200814103NA

PATIENT
  Age: 73 Year
  Sex: Male

DRUGS (7)
  1. LEVITRA [Suspect]
     Indication: ERECTILE DYSFUNCTION
     Dosage: TOTAL DAILY DOSE: 10 MG  UNIT DOSE: 10 MG
     Route: 048
     Dates: start: 20080201, end: 20080201
  2. WELLBUTRIN [Concomitant]
  3. XANAX [Concomitant]
  4. METOPROLOL TARTRATE [Concomitant]
  5. ZESTRIL [Concomitant]
  6. LESCOL XL [Concomitant]
  7. HYDROCHLOROTHIAZIDE [Concomitant]

REACTIONS (3)
  - DERMATITIS CONTACT [None]
  - RASH [None]
  - RASH PAPULAR [None]
